FAERS Safety Report 24945512 (Version 1)
Quarter: 2025Q1

REPORT INFORMATION
  Report Type: Spontaneous
  Country: US (occurrence: US)
  Receive Date: 20250209
  Receipt Date: 20250209
  Transmission Date: 20250409
  Serious: No
  Sender: SANOFI AVENTIS
  Company Number: US-SA-2025SA038952

PATIENT
  Sex: Male

DRUGS (11)
  1. DUPIXENT [Suspect]
     Active Substance: DUPILUMAB
     Indication: Asthma
     Dosage: 300 MG, QOW
     Route: 058
  2. GLIPIZIDE [Concomitant]
     Active Substance: GLIPIZIDE
  3. IPRATROPIUM [Concomitant]
     Active Substance: IPRATROPIUM
  4. MONTELUKAST [Concomitant]
     Active Substance: MONTELUKAST
  5. TADALAFIL [Concomitant]
     Active Substance: TADALAFIL
  6. HYDROCHLOROTHIAZIDE [Concomitant]
     Active Substance: HYDROCHLOROTHIAZIDE
  7. METOPROLOL TARTRATE [Concomitant]
     Active Substance: METOPROLOL TARTRATE
  8. PANTOPRAZOLE [Concomitant]
     Active Substance: PANTOPRAZOLE
  9. ROSUVASTATIN [Concomitant]
     Active Substance: ROSUVASTATIN
  10. TRELEGY ELLIPTA [Concomitant]
     Active Substance: FLUTICASONE FUROATE\UMECLIDINIUM BROMIDE\VILANTEROL TRIFENATATE
  11. VALSARTAN [Concomitant]
     Active Substance: VALSARTAN

REACTIONS (3)
  - Secretion discharge [Not Recovered/Not Resolved]
  - Nasal congestion [Not Recovered/Not Resolved]
  - Headache [Not Recovered/Not Resolved]
